FAERS Safety Report 10013431 (Version 2)
Quarter: 2014Q2

REPORT INFORMATION
  Report Type: Report from Study
  Country: US (occurrence: US)
  Receive Date: 20140314
  Receipt Date: 20140507
  Transmission Date: 20141212
  Serious: Yes (Death, Other)
  Sender: FDA-Public Use
  Company Number: US-ABBVIE-14P-163-1211602-00

PATIENT
  Age: 34 Year
  Sex: Female
  Weight: 72.64 kg

DRUGS (8)
  1. HUMIRA [Suspect]
     Indication: CROHN^S DISEASE
     Route: 058
     Dates: start: 20131125
  2. PAIN MEDICATIONS [Suspect]
     Indication: PAIN
  3. MELATONIN [Concomitant]
     Indication: PRODUCT USED FOR UNKNOWN INDICATION
  4. FLUOXETINE [Concomitant]
     Indication: PRODUCT USED FOR UNKNOWN INDICATION
  5. VALIUM [Concomitant]
     Indication: PRODUCT USED FOR UNKNOWN INDICATION
  6. PANTOPRAZOLE [Concomitant]
     Indication: PRODUCT USED FOR UNKNOWN INDICATION
  7. ENTOCORT [Concomitant]
     Indication: PRODUCT USED FOR UNKNOWN INDICATION
  8. LEVSIN [Concomitant]
     Indication: PRODUCT USED FOR UNKNOWN INDICATION

REACTIONS (15)
  - Aspiration [Fatal]
  - Pneumonia [Fatal]
  - Nasopharyngitis [Unknown]
  - Nausea [Unknown]
  - Vomiting [Unknown]
  - Aphonia [Unknown]
  - Speech disorder [Recovered/Resolved]
  - Productive cough [Recovered/Resolved]
  - Delirium [Recovered/Resolved]
  - Syncope [Recovered/Resolved]
  - Apnoea [Recovered/Resolved]
  - Overdose [Fatal]
  - Liver injury [Fatal]
  - Renal injury [Fatal]
  - Cardiac arrest [Fatal]
